FAERS Safety Report 9534690 (Version 1)
Quarter: 2013Q3

REPORT INFORMATION
  Report Type: Spontaneous
  Country: GB (occurrence: GB)
  Receive Date: 20130918
  Receipt Date: 20130918
  Transmission Date: 20140515
  Serious: Yes (Other)
  Sender: FDA-Public Use
  Company Number: GB-PFIZER INC-2013263816

PATIENT
  Sex: 0

DRUGS (2)
  1. EXEMESTANE [Suspect]
     Indication: BREAST CANCER METASTATIC
  2. EVEROLIMUS [Suspect]
     Indication: BREAST CANCER METASTATIC

REACTIONS (3)
  - White blood cell count decreased [Unknown]
  - Disease progression [Unknown]
  - Breast cancer metastatic [Unknown]
